FAERS Safety Report 6796010-X (Version None)
Quarter: 2010Q2

REPORT INFORMATION
  Report Type: 
  Country: None (occurrence: None)
  Receive Date: 20100625
  Receipt Date: 20100616
  Transmission Date: 20101027
  Serious: Yes (Hospitalization)
  Sender: FDA-Public Use
  Company Number: PE-MEDIMMUNE-MEDI-0011091

PATIENT
  Sex: Male
  Weight: 3.7 kg

DRUGS (1)
  1. SYNAGIS [Suspect]
     Route: 030
     Dates: start: 20091216

REACTIONS (2)
  - BRONCHITIS [None]
  - LARYNGITIS [None]
